FAERS Safety Report 7422616-0 (Version None)
Quarter: 2011Q2

REPORT INFORMATION
  Report Type: 
  Country: None (occurrence: None)
  Receive Date: 20110408
  Receipt Date: 20110331
  Transmission Date: 20111010
  Serious: Yes (Other)
  Sender: FDA-Public Use
  Company Number: 2011MA003306

PATIENT
  Age: 46 Year
  Sex: Female

DRUGS (4)
  1. CITALOPRAM HYDROBROMIDE [Suspect]
     Indication: DEPRESSION
     Dosage: 60 MG; QD; PO
     Route: 048
  2. ACETAMINOPHEN AND CODEINE PHOSPHATE [Concomitant]
  3. ORLISTAT [Concomitant]
  4. AMLODIPINE [Concomitant]

REACTIONS (2)
  - LACUNAR INFARCTION [None]
  - CEREBROVASCULAR ACCIDENT [None]
